FAERS Safety Report 6968929-8 (Version None)
Quarter: 2010Q3

REPORT INFORMATION
  Report Type: 
  Country: None (occurrence: None)
  Receive Date: 20100907
  Receipt Date: 20100830
  Transmission Date: 20110219
  Serious: Yes (Other)
  Sender: FDA-Public Use
  Company Number: US-PFIZER INC-2010104019

PATIENT
  Sex: Male

DRUGS (1)
  1. SUTENT [Suspect]
     Indication: RENAL CELL CARCINOMA
     Dosage: 50 MG, 1X/DAY, 4 WEEKS ON AND 2 WEEK OFF
     Dates: start: 20100729

REACTIONS (3)
  - PHARYNGEAL OEDEMA [None]
  - RECTAL HAEMORRHAGE [None]
  - SWOLLEN TONGUE [None]
